FAERS Safety Report 24195026 (Version 1)
Quarter: 2024Q3

REPORT INFORMATION
  Report Type: Report from Study
  Country: GB (occurrence: GB)
  Receive Date: 20240809
  Receipt Date: 20240809
  Transmission Date: 20241016
  Serious: Yes (Other)
  Sender: BAYER
  Company Number: GB-BAYER-2024A114986

PATIENT
  Age: 75 Year
  Sex: Male

DRUGS (1)
  1. NUBEQA [Suspect]
     Active Substance: DAROLUTAMIDE
     Indication: Hormone-refractory prostate cancer
     Dosage: 600 MG, BID
     Dates: start: 20230411

REACTIONS (3)
  - Renal impairment [Not Recovered/Not Resolved]
  - Blood creatinine increased [None]
  - Depressed mood [Not Recovered/Not Resolved]

NARRATIVE: CASE EVENT DATE: 20240801
